FAERS Safety Report 11537151 (Version 2)
Quarter: 2015Q3

REPORT INFORMATION
  Report Type: Spontaneous
  Country: US (occurrence: US)
  Receive Date: 20150922
  Receipt Date: 20150924
  Transmission Date: 20151125
  Serious: Yes (Other)
  Sender: FDA-Public Use
  Company Number: US-SA-2015SA141293

PATIENT
  Age: 42 Year
  Sex: Male

DRUGS (2)
  1. SOLOSTAR [Concomitant]
     Active Substance: DEVICE
     Indication: TYPE 2 DIABETES MELLITUS
     Dates: start: 2013
  2. LANTUS SOLOSTAR [Suspect]
     Active Substance: INSULIN GLARGINE
     Indication: TYPE 2 DIABETES MELLITUS
     Dosage: DOSE:44 UNIT(S)
     Route: 065
     Dates: start: 2013

REACTIONS (7)
  - Drug dose omission [Unknown]
  - Depression [Unknown]
  - Bipolar disorder [Unknown]
  - Anxiety [Unknown]
  - Drug administration error [Unknown]
  - Blood glucose decreased [Unknown]
  - Feeling jittery [Unknown]

NARRATIVE: CASE EVENT DATE: 2014
